FAERS Safety Report 12547871 (Version 1)
Quarter: 2016Q3

REPORT INFORMATION
  Report Type: Spontaneous
  Country: US (occurrence: None)
  Receive Date: 20160711
  Receipt Date: 20160711
  Transmission Date: 20161109
  Serious: No
  Sender: FDA-Public Use
  Company Number: None

PATIENT
  Age: 39 Year
  Sex: Male

DRUGS (1)
  1. DAKLINZA [Suspect]
     Active Substance: DACLATASVIR
     Indication: PRODUCT USED FOR UNKNOWN INDICATION
     Dates: start: 20160617

REACTIONS (4)
  - Nausea [None]
  - Headache [None]
  - Hypersomnia [None]
  - Fatigue [None]

NARRATIVE: CASE EVENT DATE: 20160708
